APPROVED DRUG PRODUCT: DOCETAXEL
Active Ingredient: DOCETAXEL
Strength: 80MG/4ML (20MG/ML)
Dosage Form/Route: INJECTABLE;INJECTION
Application: A203892 | Product #002
Applicant: PHARMOBEDIENT CONSULTING LLC
Approved: May 11, 2023 | RLD: No | RS: No | Type: DISCN